FAERS Safety Report 12856105 (Version 3)
Quarter: 2016Q4

REPORT INFORMATION
  Report Type: Spontaneous
  Country: JP (occurrence: JP)
  Receive Date: 20161018
  Receipt Date: 20161123
  Transmission Date: 20170207
  Serious: Yes (Hospitalization, Other)
  Sender: FDA-Public Use
  Company Number: JP-ROCHE-1838147

PATIENT
  Age: 58 Year
  Sex: Female

DRUGS (2)
  1. LUCENTIS [Suspect]
     Active Substance: RANIBIZUMAB
     Indication: RETINAL VEIN OCCLUSION
     Dosage: 0.05 ML, PER ADMINISTARTION
     Route: 031
     Dates: start: 20160720, end: 20160720
  2. LUCENTIS [Suspect]
     Active Substance: RANIBIZUMAB
     Indication: MACULAR OEDEMA

REACTIONS (4)
  - Vitreous detachment [Unknown]
  - Retinal tear [Unknown]
  - Vision blurred [Unknown]
  - Retinal detachment [Unknown]

NARRATIVE: CASE EVENT DATE: 20160919
